FAERS Safety Report 6295437-2 (Version None)
Quarter: 2009Q3

REPORT INFORMATION
  Report Type: 
  Country: None (occurrence: None)
  Receive Date: 20090730
  Receipt Date: 20090714
  Transmission Date: 20100115
  Serious: Yes (Other)
  Sender: FDA-Public Use
  Company Number: 1-19166349

PATIENT
  Age: 32 Year
  Sex: Male

DRUGS (1)
  1. FLO-PRED [Suspect]
     Indication: LEPTOSPIROSIS
     Dosage: 70 MG PER DAY, ORAL
     Route: 048

REACTIONS (11)
  - ABDOMINAL DISTENSION [None]
  - ABDOMINAL PAIN LOWER [None]
  - BLOOD ALBUMIN DECREASED [None]
  - CONSTIPATION [None]
  - DUODENAL ULCER [None]
  - FAECALITH [None]
  - HAEMOGLOBIN DECREASED [None]
  - IMMUNOSUPPRESSION [None]
  - OEDEMA MUCOSAL [None]
  - PROTEIN TOTAL DECREASED [None]
  - STRONGYLOIDIASIS [None]
